FAERS Safety Report 8424592-0 (Version None)
Quarter: 2012Q2

REPORT INFORMATION
  Report Type: 
  Country: None (occurrence: None)
  Receive Date: 20120611
  Receipt Date: 20120528
  Transmission Date: 20120825
  Serious: Yes (Other)
  Sender: FDA-Public Use
  Company Number: BR-NOVOPROD-352769

PATIENT
  Age: 70 Year
  Sex: Female
  Weight: 82 kg

DRUGS (6)
  1. OLCADIL [Concomitant]
     Indication: INSOMNIA
     Dosage: 1/2 TABLET / DAY
     Route: 048
     Dates: start: 20100528
  2. OSCAL D                            /00944201/ [Concomitant]
     Indication: VITAMIN SUPPLEMENTATION
     Dosage: 1 TAB, QD
     Route: 048
     Dates: start: 19920528
  3. SERENATA [Concomitant]
     Indication: ANXIETY
     Dosage: 1/2 TABLET /  DAY
     Route: 048
     Dates: start: 20110528
  4. BONVIVA                            /01304701/ [Concomitant]
     Indication: BLOOD CALCIUM ABNORMAL
     Dosage: 01 TABLET PER MONTH
     Route: 048
     Dates: start: 20100528
  5. VICTOZA [Suspect]
     Indication: TYPE 2 DIABETES MELLITUS
     Dosage: 1.8 MG, QD
     Route: 058
     Dates: start: 20110928
  6. METFORMIN HYDROCHLORIDE [Concomitant]
     Indication: TYPE 2 DIABETES MELLITUS
     Dosage: 2 TAB, QD
     Route: 048
     Dates: start: 20020528

REACTIONS (3)
  - BENIGN COLONIC NEOPLASM [None]
  - COLON ADENOMA [None]
  - COLON CANCER STAGE II [None]
